FAERS Safety Report 21002432 (Version 1)
Quarter: 2022Q2

REPORT INFORMATION
  Report Type: Spontaneous
  Country: US (occurrence: US)
  Receive Date: 20220624
  Receipt Date: 20220624
  Transmission Date: 20220720
  Serious: No
  Sender: FDA-Public Use
  Company Number: US-BRISTOL-MYERS SQUIBB COMPANY-2022-062747

PATIENT
  Age: 77 Year
  Sex: Female

DRUGS (1)
  1. REVLIMID [Suspect]
     Active Substance: LENALIDOMIDE
     Indication: Osteoporosis
     Dosage: FREQ: EVERY DAY FOR 21 DAYS FOLLOWED BY 7 DAYS OFF MEDICATION
     Route: 048

REACTIONS (2)
  - Diarrhoea [Unknown]
  - Intentional product use issue [Unknown]
